FAERS Safety Report 17908233 (Version 1)
Quarter: 2020Q2

REPORT INFORMATION
  Report Type: Other
  Country: CA (occurrence: CA)
  Receive Date: 20200617
  Receipt Date: 20200617
  Transmission Date: 20200714
  Serious: Yes (Other)
  Sender: FDA-Public Use
  Company Number: CA-BECTON DICKINSON-2020BDN00163

PATIENT

DRUGS (21)
  1. METHOTREXATE. [Suspect]
     Active Substance: METHOTREXATE
  2. SIMPONI [Suspect]
     Active Substance: GOLIMUMAB
     Route: 058
  3. ETANERCEPT [Suspect]
     Active Substance: ETANERCEPT
  4. LEFLUNOMIDE. [Suspect]
     Active Substance: LEFLUNOMIDE
     Dosage: UNK
     Route: 048
  5. DESOGESTREL/ETHINYL ESTRADIOL [Concomitant]
     Active Substance: DESOGESTREL\ETHINYL ESTRADIOL
  6. PANTOPRAZOLE [Concomitant]
     Active Substance: PANTOPRAZOLE
  7. ACTEMRA [Suspect]
     Active Substance: TOCILIZUMAB
  8. CIMZIA [Suspect]
     Active Substance: CERTOLIZUMAB PEGOL
     Route: 058
  9. OXYCODONE [Suspect]
     Active Substance: OXYCODONE
  10. PREDNISONE. [Concomitant]
     Active Substance: PREDNISONE
  11. VITAMIN C [Concomitant]
     Active Substance: ASCORBIC ACID
  12. CHLORHEXIDINE [Suspect]
     Active Substance: CHLORHEXIDINE
  13. LEFLUNOMIDE. [Suspect]
     Active Substance: LEFLUNOMIDE
     Dosage: UNK
  14. REACTINE [Concomitant]
  15. ZOPICLONE [Concomitant]
     Active Substance: ZOPICLONE
  16. ACETAMINOPHEN. [Suspect]
     Active Substance: ACETAMINOPHEN
  17. ORENCIA [Suspect]
     Active Substance: ABATACEPT
     Route: 042
  18. IBUPROFEN. [Concomitant]
     Active Substance: IBUPROFEN
  19. SALBUTAMOL [Concomitant]
     Active Substance: ALBUTEROL
  20. ERGOCALCIFEROL. [Concomitant]
     Active Substance: ERGOCALCIFEROL
  21. HYDROXYCHLOROQUINE [Concomitant]
     Active Substance: HYDROXYCHLOROQUINE

REACTIONS (20)
  - Abdominal pain [Unknown]
  - Diarrhoea [Unknown]
  - Insomnia [Unknown]
  - Pain [Unknown]
  - Rash [Unknown]
  - Joint swelling [Unknown]
  - Muscle spasticity [Unknown]
  - Asthenia [Unknown]
  - Respiratory disorder [Unknown]
  - Vomiting [Unknown]
  - Back pain [Unknown]
  - Headache [Unknown]
  - Lower respiratory tract infection [Unknown]
  - Sinusitis [Unknown]
  - Body temperature increased [Unknown]
  - Peripheral swelling [Unknown]
  - Urticaria [Unknown]
  - Ear pain [Unknown]
  - Night sweats [Unknown]
  - Pruritus [Unknown]
